FAERS Safety Report 8971475 (Version 4)
Quarter: 2015Q2

REPORT INFORMATION
  Report Type: Report from Study
  Country: US (occurrence: US)
  Receive Date: 20121217
  Receipt Date: 20150430
  Transmission Date: 20150821
  Serious: Yes (Hospitalization, Congenital Anomaly, Other)
  Sender: FDA-Public Use
  Company Number: US-GILEAD-2012-0065961

PATIENT
  Sex: Female
  Weight: 2.14 kg

DRUGS (7)
  1. REYATAZ [Suspect]
     Active Substance: ATAZANAVIR SULFATE
     Indication: HIV INFECTION
     Dosage: 300 UNK, QD
     Route: 064
     Dates: start: 20120815, end: 20120912
  2. TRIMETHOPRIM SULFA [Concomitant]
     Active Substance: TRIMETHOPRIM SULFATE
  3. EMTRICITABINE/TENOFOVIR DISOPROXIL FUMARATE [Suspect]
     Active Substance: EMTRICITABINE\TENOFOVIR DISOPROXIL
     Indication: HIV INFECTION
     Dosage: 1 DF, QD
     Route: 064
     Dates: start: 20120815, end: 20120912
  4. NORVIR [Suspect]
     Active Substance: RITONAVIR
     Indication: HIV INFECTION
     Dosage: 100 UNK, QD
     Route: 064
     Dates: start: 20120815, end: 20120912
  5. KALETRA [Suspect]
     Active Substance: LOPINAVIR\RITONAVIR
     Indication: HIV INFECTION
     Dosage: 2 DF, QD
     Route: 064
     Dates: start: 20120913, end: 20120920
  6. COMBIVIR [Suspect]
     Active Substance: LAMIVUDINE\ZIDOVUDINE
     Indication: HIV INFECTION
     Dosage: 2 DF, QD
     Route: 064
     Dates: start: 20120913, end: 20121114
  7. KALETRA [Suspect]
     Active Substance: LOPINAVIR\RITONAVIR
     Dosage: 3 DF, QD
     Route: 064
     Dates: start: 20120921, end: 20121114

REACTIONS (20)
  - Congenital skin dimples [Unknown]
  - Sepsis [Unknown]
  - Congenital eye disorder [Unknown]
  - Head deformity [Unknown]
  - Facial asymmetry [Unknown]
  - High arched palate [Unknown]
  - Brachycephaly [Unknown]
  - Premature baby [Unknown]
  - Dry skin [Unknown]
  - Vulval disorder [Unknown]
  - Neonatal respiratory distress syndrome [Unknown]
  - Ear malformation [Unknown]
  - Skull malformation [Unknown]
  - Clinodactyly [Unknown]
  - Cytogenetic abnormality [Unknown]
  - Dysmorphism [Unknown]
  - Nasal disorder [Unknown]
  - Nipple disorder [Unknown]
  - Foot deformity [Unknown]
  - Respiratory failure [Unknown]
